FAERS Safety Report 6862937-3 (Version None)
Quarter: 2010Q3

REPORT INFORMATION
  Report Type: 
  Country: None (occurrence: None)
  Receive Date: 20100719
  Receipt Date: 20100702
  Transmission Date: 20110219
  Serious: Yes (Hospitalization)
  Sender: FDA-Public Use
  Company Number: 2010-1404

PATIENT
  Age: 65 Year
  Sex: Female

DRUGS (15)
  1. APO-GO AMPOULES (APO-GO) (APOMORPHINE HYDROCHLORIDE) (APOMORPHINE HYDR [Suspect]
     Indication: PARKINSON'S DISEASE
     Dosage: (3.6 MG, 1 IN 1 HR), SUBCUTANEOUS
     Route: 058
     Dates: start: 20080901, end: 20090201
  2. APO-GO AMPOULES (APO-GO) (APOMORPHINE HYDROCHLORIDE) (APOMORPHINE HYDR [Suspect]
     Indication: PARKINSON'S DISEASE
     Dosage: (3.6 MG, 1 IN 1 HR), SUBCUTANEOUS
     Route: 058
     Dates: end: 20100601
  3. CITALOPRAM HYDROBROMIDE [Concomitant]
  4. AMANTADINE HCL [Concomitant]
  5. GABAPENTIN [Concomitant]
  6. RIVASTIGMINE TARTRATE [Concomitant]
  7. DUROGESIC DTRANS (FENTANYL) [Concomitant]
  8. LEVOTHYROXINE SODIUM [Concomitant]
  9. STALEVO (STALEVO) [Concomitant]
  10. MIRTAZAPINE [Concomitant]
  11. SIMVASTATIN [Concomitant]
  12. ASPIRIN [Concomitant]
  13. ALENDRONATE SODIUM [Concomitant]
  14. PREDNISOLONE [Concomitant]
  15. CHLORPHENIRAMINE MALEATE [Concomitant]

REACTIONS (8)
  - CELLULITIS [None]
  - DERMATITIS ALLERGIC [None]
  - HAEMOGLOBIN DECREASED [None]
  - INFUSION SITE INFLAMMATION [None]
  - INFUSION SITE REACTION [None]
  - NODULE [None]
  - PAIN [None]
  - SWELLING [None]
